FAERS Safety Report 12378832 (Version 2)
Quarter: 2016Q3

REPORT INFORMATION
  Report Type: Spontaneous
  Country: US (occurrence: US)
  Receive Date: 20160517
  Receipt Date: 20160722
  Transmission Date: 20161109
  Serious: No
  Sender: FDA-Public Use
  Company Number: US-ACTELION-A-US2016-136263

PATIENT
  Age: 69 Year
  Sex: Male

DRUGS (7)
  1. PRAVASTATIN. [Concomitant]
     Active Substance: PRAVASTATIN
  2. TAMSULOSIN [Concomitant]
     Active Substance: TAMSULOSIN
  3. LEVOTHYROXINE. [Concomitant]
     Active Substance: LEVOTHYROXINE
  4. VALCHLOR [Suspect]
     Active Substance: MECHLORETHAMINE
     Dosage: Q2DAYS
     Route: 061
     Dates: start: 20160512
  5. LISINOPRIL. [Concomitant]
     Active Substance: LISINOPRIL
  6. VALCHLOR [Suspect]
     Active Substance: MECHLORETHAMINE
     Indication: MYCOSIS FUNGOIDES
     Dosage: QD
     Route: 061
     Dates: start: 20160216, end: 2016
  7. ACITRIN [Concomitant]

REACTIONS (3)
  - Application site vesicles [Recovered/Resolved]
  - Pruritus [Unknown]
  - Burning sensation [Unknown]
